APPROVED DRUG PRODUCT: SODIUM CHROMATE CR 51
Active Ingredient: SODIUM CHROMATE CR-51
Strength: 100uCi/ML
Dosage Form/Route: INJECTABLE;INJECTION
Application: N016708 | Product #001
Applicant: CURIUM US LLC
Approved: Approved Prior to Jan 1, 1982 | RLD: No | RS: No | Type: DISCN